FAERS Safety Report 20307751 (Version 1)
Quarter: 2022Q1

REPORT INFORMATION
  Report Type: Other
  Country: DE (occurrence: DE)
  Receive Date: 20220107
  Receipt Date: 20220107
  Transmission Date: 20220423
  Serious: Yes (Congenital Anomaly, Other)
  Sender: FDA-Public Use
  Company Number: DE-EMBRYOTOX-202007396

PATIENT

DRUGS (6)
  1. NEBIVOLOL HYDROCHLORIDE [Suspect]
     Active Substance: NEBIVOLOL HYDROCHLORIDE
     Indication: Product used for unknown indication
     Dosage: 5 [MG/D (1-0-0) ]/ OR UNTIL GW 8. NOT CLEAR; 1ST TRIMETSER AT 0. - 4.3. GESTATIONAL WEEK
     Route: 064
     Dates: start: 20200603, end: 20200705
  2. METOPROLOL [Suspect]
     Active Substance: METOPROLOL
     Indication: Product used for unknown indication
     Dosage: 47.5 [MG/D (BIS 28.75) ]/ OR FROM GW 8 UNTIL DELIVERY; 1ST TRIMESTER AT 5. - 39.6. GESTATIONAL WEEK
     Route: 064
  3. METHYLDOPA [Concomitant]
     Active Substance: METHYLDOPA
     Indication: Product used for unknown indication
     Dosage: 250 MILLIGRAM, BID (500 [MG/D (2X250) ]); 3RD TRIMESTER 32. - 39.6. GESTATIONAL WEEK
     Route: 064
  4. CLOMIPHENE [Concomitant]
     Active Substance: CLOMIPHENE
     Indication: Product used for unknown indication
     Dosage: UNK, 1 TRIMESTER AT 0. - 2. GESTATIONAL WEEK
     Route: 064
  5. PROGESTERONE [Concomitant]
     Active Substance: PROGESTERONE
     Indication: Product used for unknown indication
     Dosage: 200 MILLIGRAM, BID (400 [MG/D (200-0-200) ]); 1ST TRIMESTER AT 2. - 12. GESTATIONAL WEEK
     Route: 064
  6. LEVOTHYROXINE SODIUM [Concomitant]
     Active Substance: LEVOTHYROXINE SODIUM
     Indication: Product used for unknown indication
     Dosage: 25 MICROGRAM, BID (50 [?G/D (BIS 25) ]); 1ST TRIMESTER AT 0. - 31.6. GESTATIONAL WEEK
     Route: 064
     Dates: start: 20200603, end: 20210113

REACTIONS (2)
  - Congenital hydronephrosis [Unknown]
  - Foetal exposure during pregnancy [Unknown]
